FAERS Safety Report 5087939-1 (Version None)
Quarter: 2006Q3

REPORT INFORMATION
  Report Type: 
  Country: None (occurrence: None)
  Receive Date: 20060821
  Receipt Date: 20060809
  Transmission Date: 20061208
  Serious: Yes (Other)
  Sender: FDA-Public Use
  Company Number: 2006US-03209

PATIENT
  Age: 81 Year
  Sex: Male

DRUGS (6)
  1. CLINDAMYCIN HYDROCHLORIDE [Suspect]
     Dosage: 150 MG
     Dates: start: 20060712, end: 20060719
  2. ALAPURINOL [Concomitant]
  3. ALTASE [Concomitant]
  4. NORVASC [Concomitant]
  5. LIPITOR [Concomitant]
  6. METAPROLOL [Concomitant]

REACTIONS (4)
  - ANAL DISCOMFORT [None]
  - DIZZINESS [None]
  - DYSGEUSIA [None]
  - RECTAL DISCHARGE [None]
